FAERS Safety Report 8854727 (Version 2)
Quarter: 2012Q4

REPORT INFORMATION
  Report Type: 
  Country: US (occurrence: US)
  Receive Date: 20121023
  Receipt Date: 20121130
  Transmission Date: 20130627
  Serious: Yes (Death)
  Sender: FDA-Public Use
  Company Number: US-SANOFI-AVENTIS-2012SA075174

PATIENT
  Age: 77 Year
  Sex: Male
  Weight: 83.91 kg

DRUGS (5)
  1. LANTUS SOLOSTAR [Suspect]
     Indication: DIABETES
     Route: 058
     Dates: end: 200912
  2. LANTUS SOLOSTAR [Suspect]
     Indication: DIABETES
     Route: 058
     Dates: end: 200912
  3. SOLOSTAR [Suspect]
     Indication: DIABETES
     Dates: end: 200912
  4. SOLOSTAR [Suspect]
     Indication: DIABETES
     Dates: end: 200912
  5. NOVOLOG [Suspect]
     Indication: DIABETES
     Route: 065
     Dates: end: 200912

REACTIONS (1)
  - Death [Fatal]
